FAERS Safety Report 16650369 (Version 1)
Quarter: 2019Q3

REPORT INFORMATION
  Report Type: Spontaneous
  Country: US (occurrence: US)
  Receive Date: 20190731
  Receipt Date: 20190731
  Transmission Date: 20191004
  Serious: Yes (Other)
  Sender: FDA-Public Use
  Company Number: US-APOTEX-2019AP019145

PATIENT
  Age: 51 Year
  Sex: Female

DRUGS (5)
  1. CYCLOSPORINE. [Suspect]
     Active Substance: CYCLOSPORINE
     Indication: DERMATOMYOSITIS
     Dosage: UNK
     Route: 065
  2. IMMUNOGLOBULIN                     /00025201/ [Concomitant]
     Active Substance: HUMAN IMMUNOGLOBULIN G
     Indication: DERMATOMYOSITIS
     Dosage: UNK
     Route: 042
  3. METHOTREXATE. [Suspect]
     Active Substance: METHOTREXATE
     Indication: DERMATOMYOSITIS
     Dosage: UNK
     Route: 065
  4. CORTICOSTEROIDS [Suspect]
     Active Substance: CORTICOSTEROID NOS
     Indication: DERMATOMYOSITIS
     Dosage: UNK
     Route: 048
  5. MYCOPHENOLATE [Suspect]
     Active Substance: MYCOPHENOLIC ACID
     Indication: DERMATOMYOSITIS
     Dosage: UNK
     Route: 065

REACTIONS (2)
  - Cutaneous lymphoma [Unknown]
  - Diffuse large B-cell lymphoma [Unknown]
